FAERS Safety Report 7154280-2 (Version None)
Quarter: 2010Q4

REPORT INFORMATION
  Report Type: 
  Country: None (occurrence: None)
  Receive Date: 20101213
  Receipt Date: 20101130
  Transmission Date: 20110411
  Serious: Yes (Disabling)
  Sender: FDA-Public Use
  Company Number: US-BAYER-201020279BCC

PATIENT
  Sex: Female
  Weight: 63.492 kg

DRUGS (3)
  1. MIDOL [CAFFEINE,MEPYRAMINE MALEATE,PARACETAMOL] [Suspect]
     Indication: MENSTRUAL DISORDER
     Dosage: EVERY 6 HOURS
     Route: 048
     Dates: start: 20100918
  2. MIDOL [CAFFEINE,MEPYRAMINE MALEATE,PARACETAMOL] [Suspect]
     Dosage: UNK
     Dates: start: 20101002
  3. DROSPIRENONE AND ETHINYL ESTRADIOL [Concomitant]

REACTIONS (6)
  - ABASIA [None]
  - DIZZINESS [None]
  - FATIGUE [None]
  - FEELING HOT [None]
  - NAUSEA [None]
  - NERVOUSNESS [None]
